FAERS Safety Report 12548735 (Version 1)
Quarter: 2016Q3

REPORT INFORMATION
  Report Type: Spontaneous
  Country: US (occurrence: None)
  Receive Date: 20160711
  Receipt Date: 20160711
  Transmission Date: 20161109
  Serious: Yes (Hospitalization)
  Sender: FDA-Public Use
  Company Number: None

PATIENT
  Age: 48 Year
  Sex: Female
  Weight: 56.7 kg

DRUGS (1)
  1. LITHIUM, 300MG [Suspect]
     Active Substance: LITHIUM
     Route: 048

REACTIONS (3)
  - Tremor [None]
  - Mental status changes [None]
  - Musculoskeletal stiffness [None]

NARRATIVE: CASE EVENT DATE: 20160701
